FAERS Safety Report 21063895 (Version 2)
Quarter: 2022Q3

REPORT INFORMATION
  Report Type: Report from Study
  Country: BR (occurrence: BR)
  Receive Date: 20220711
  Receipt Date: 20220826
  Transmission Date: 20221026
  Serious: Yes (Other)
  Sender: FDA-Public Use
  Company Number: BR-ABBVIE-22K-020-4461909-00

PATIENT
  Age: 35 Year
  Sex: Female
  Weight: 113 kg

DRUGS (5)
  1. RINVOQ [Suspect]
     Active Substance: UPADACITINIB
     Indication: Rheumatoid arthritis
     Route: 048
     Dates: start: 20201106
  2. XARELTO [Suspect]
     Active Substance: RIVAROXABAN
     Indication: Product used for unknown indication
     Route: 065
  3. RIVAROXABAN [Concomitant]
     Active Substance: RIVAROXABAN
     Indication: Anticoagulant therapy
  4. PREDNISONE [Concomitant]
     Active Substance: PREDNISONE
     Indication: Antiinflammatory therapy
  5. MELOXICAM [Concomitant]
     Active Substance: MELOXICAM
     Indication: Antiinflammatory therapy

REACTIONS (10)
  - Haemorrhage [Recovered/Resolved]
  - Vein rupture [Recovered/Resolved]
  - Vein rupture [Recovered/Resolved]
  - Vein rupture [Recovered/Resolved]
  - Erythema [Not Recovered/Not Resolved]
  - Rheumatoid arthritis [Not Recovered/Not Resolved]
  - Burning sensation [Recovered/Resolved]
  - Burning sensation [Recovered/Resolved]
  - Burning sensation [Recovered/Resolved]
  - Haematoma [Recovered/Resolved]

NARRATIVE: CASE EVENT DATE: 20211120
